FAERS Safety Report 5311746-5 (Version None)
Quarter: 2007Q2

REPORT INFORMATION
  Report Type: 
  Country: None (occurrence: None)
  Receive Date: 20070430
  Receipt Date: 20070417
  Transmission Date: 20071010
  Serious: Yes (Other)
  Sender: FDA-Public Use
  Company Number: US-ROCHE-493388

PATIENT
  Age: 43 Year
  Sex: Female
  Weight: 70.3 kg

DRUGS (4)
  1. XENICAL [Suspect]
     Indication: WEIGHT CONTROL
     Route: 048
     Dates: start: 19940101
  2. XENICAL [Suspect]
     Route: 048
     Dates: start: 20040101, end: 20050101
  3. LOESTRIN [Suspect]
     Dosage: REPORTED AS LOESTRIN FE 1/20
     Route: 048
     Dates: start: 19900101, end: 20050101
  4. NORVASC [Concomitant]
     Route: 048

REACTIONS (5)
  - ANXIETY [None]
  - BREAST CANCER [None]
  - BREAST MASS [None]
  - HOT FLUSH [None]
  - SLEEP DISORDER [None]
